FAERS Safety Report 5675696-7 (Version None)
Quarter: 2008Q1

REPORT INFORMATION
  Report Type: 
  Country: None (occurrence: None)
  Receive Date: 20080321
  Receipt Date: 20080312
  Transmission Date: 20080703
  Serious: Yes (Other)
  Sender: FDA-Public Use
  Company Number: PHEH2008US02767

PATIENT
  Age: 59 Year
  Sex: Male

DRUGS (4)
  1. METHADON HCL TAB [Concomitant]
     Indication: PAIN
  2. VICODIN [Concomitant]
     Indication: PAIN
  3. MOTRIN [Concomitant]
     Indication: PAIN
  4. ZOMETA [Suspect]
     Indication: METASTASES TO BONE
     Dosage: 4MG, QMONTH
     Dates: start: 20071212, end: 20080304

REACTIONS (6)
  - BACK PAIN [None]
  - CONDITION AGGRAVATED [None]
  - INTERVERTEBRAL DISC DISORDER [None]
  - MUSCULOSKELETAL PAIN [None]
  - PAIN [None]
  - PAIN IN EXTREMITY [None]
